FAERS Safety Report 21043203 (Version 1)
Quarter: 2022Q3

REPORT INFORMATION
  Report Type: Spontaneous
  Country: EG (occurrence: EG)
  Receive Date: 20220705
  Receipt Date: 20220705
  Transmission Date: 20221027
  Serious: Yes (Hospitalization)
  Sender: FDA-Public Use
  Company Number: EG-PFIZER INC-PV202200011177

PATIENT
  Age: 53 Year
  Sex: Male

DRUGS (5)
  1. DOXORUBICIN [Suspect]
     Active Substance: DOXORUBICIN
  2. RITUXIMAB [Suspect]
     Active Substance: RITUXIMAB
  3. CYCLOPHOSPHAMIDE [Suspect]
     Active Substance: CYCLOPHOSPHAMIDE
  4. ONCOVIN [Suspect]
     Active Substance: VINCRISTINE SULFATE
  5. PREDNISONE [Suspect]
     Active Substance: PREDNISONE

REACTIONS (1)
  - COVID-19 [Recovered/Resolved]
